FAERS Safety Report 25651337 (Version 2)
Quarter: 2025Q3

REPORT INFORMATION
  Report Type: Spontaneous
  Country: US (occurrence: US)
  Receive Date: 20250806
  Receipt Date: 20250811
  Transmission Date: 20251021
  Serious: Yes (Other)
  Sender: ETHYPHARM
  Company Number: US-ETHYPHARM-2025002264

PATIENT
  Age: 42 Year
  Sex: Female

DRUGS (6)
  1. BUPRENORPHINE\NALOXONE [Suspect]
     Active Substance: BUPRENORPHINE\NALOXONE
     Indication: Drug use disorder
     Dosage: INITIATED 1 MONTH PRIOR AT A RESIDENTIAL FACILITY. MISSED 1 DAY. AND THEN RESUMED DOSE.
  2. BUPRENORPHINE\NALOXONE [Suspect]
     Active Substance: BUPRENORPHINE\NALOXONE
     Indication: Drug use disorder
     Dosage: GRADUALLY TAPERED FROM 18 MG/ DAY DOWN TO 2 MG PER DAY
  3. BUPRENORPHINE\NALOXONE [Suspect]
     Active Substance: BUPRENORPHINE\NALOXONE
     Indication: Drug use disorder
     Dosage: UP-TITRATED BUP/NX TO 24 MG
  4. LYBALVI [Interacting]
     Active Substance: OLANZAPINE\SAMIDORPHAN L-MALATE
     Indication: Bipolar disorder
  5. BUPROPION [Concomitant]
     Active Substance: BUPROPION
     Indication: Bipolar disorder
     Dosage: 150 MG XR NIGHTLY
  6. BUSPIRONE [Concomitant]
     Active Substance: BUSPIRONE HYDROCHLORIDE
     Indication: Bipolar disorder
     Dosage: 30 MG TWICE DAILY

REACTIONS (8)
  - Anxiety [Recovered/Resolved]
  - Drug dependence [Not Recovered/Not Resolved]
  - Agitation [Recovered/Resolved]
  - Insomnia [Recovered/Resolved]
  - Myalgia [Recovered/Resolved]
  - Hyperhidrosis [Recovered/Resolved]
  - Therapeutic product effect decreased [Unknown]
  - Drug interaction [Recovered/Resolved]
